FAERS Safety Report 23184594 (Version 1)
Quarter: 2023Q4

REPORT INFORMATION
  Report Type: Spontaneous
  Country: RU (occurrence: RU)
  Receive Date: 20231115
  Receipt Date: 20231115
  Transmission Date: 20240110
  Serious: Yes (Hospitalization)
  Sender: FDA-Public Use
  Company Number: RU-SANDOZ-SDZ2023RU053582

PATIENT
  Sex: Female
  Weight: 55 kg

DRUGS (4)
  1. ACETYLCYSTEINE [Suspect]
     Active Substance: ACETYLCYSTEINE
     Indication: Suicide attempt
     Dosage: UNK
     Route: 048
     Dates: start: 20231026, end: 20231026
  2. CIPROFLOXACIN\TINIDAZOLE [Suspect]
     Active Substance: CIPROFLOXACIN\TINIDAZOLE
     Indication: Suicide attempt
     Dosage: UNK
     Route: 048
     Dates: start: 20231026, end: 20231026
  3. ACETAMINOPHEN [Suspect]
     Active Substance: ACETAMINOPHEN
     Indication: Suicide attempt
     Dosage: UNK
     Route: 048
     Dates: start: 20231026, end: 20231026
  4. TOLPERISONE [Suspect]
     Active Substance: TOLPERISONE
     Indication: Suicide attempt
     Dosage: UNK
     Route: 048
     Dates: start: 20231026, end: 20231026

REACTIONS (4)
  - Vomiting [Recovering/Resolving]
  - Abdominal pain upper [Recovering/Resolving]
  - Chills [Recovering/Resolving]
  - Tremor [Recovering/Resolving]

NARRATIVE: CASE EVENT DATE: 20231026
